FAERS Safety Report 12393441 (Version 3)
Quarter: 2016Q3

REPORT INFORMATION
  Report Type: Spontaneous
  Country: US (occurrence: US)
  Receive Date: 20160523
  Receipt Date: 20160726
  Transmission Date: 20161109
  Serious: Yes (Other)
  Sender: FDA-Public Use
  Company Number: US-GLAXOSMITHKLINE-US2016070574

PATIENT
  Age: 69 Year
  Sex: Female

DRUGS (4)
  1. VOLTAREN [Suspect]
     Active Substance: DICLOFENAC SODIUM
     Indication: PRODUCT USED FOR UNKNOWN INDICATION
     Dosage: UNK
  2. VOLTAREN [Suspect]
     Active Substance: DICLOFENAC SODIUM
     Indication: FIBROMYALGIA
     Dosage: UNK
  3. VOLTAREN [Suspect]
     Active Substance: DICLOFENAC SODIUM
     Dosage: UNK
  4. VOLTAREN [Suspect]
     Active Substance: DICLOFENAC SODIUM
     Indication: ARTHRITIS
     Dosage: UNK

REACTIONS (10)
  - Renal failure [Unknown]
  - Abdominal discomfort [Unknown]
  - Drug administration error [Unknown]
  - Feeling abnormal [Unknown]
  - Ankle fracture [Unknown]
  - Drug administered at inappropriate site [Unknown]
  - Product quality issue [Unknown]
  - Off label use [Unknown]
  - Hip fracture [Unknown]
  - Fall [Unknown]
